FAERS Safety Report 6937808-4 (Version None)
Quarter: 2010Q3

REPORT INFORMATION
  Report Type: 
  Country: None (occurrence: None)
  Receive Date: 20100823
  Receipt Date: 20100823
  Transmission Date: 20110219
  Serious: Yes (Hospitalization)
  Sender: FDA-Public Use
  Company Number: None

PATIENT
  Age: 70 Year
  Sex: Male
  Weight: 63 kg

DRUGS (11)
  1. SIMVASTATIN [Suspect]
     Indication: CORONARY ARTERY DISEASE
     Dosage: 40MG DAILY PO
     Route: 048
     Dates: start: 20070531, end: 20100517
  2. SIMVASTATIN [Suspect]
     Indication: HYPERLIPIDAEMIA
     Dosage: 40MG DAILY PO
     Route: 048
     Dates: start: 20070531, end: 20100517
  3. NIACIN [Suspect]
     Indication: HYPERLIPIDAEMIA
     Dosage: 1000MG BID PO
     Route: 048
     Dates: start: 20050620, end: 20100517
  4. PLAVIX [Concomitant]
  5. K-TAB [Concomitant]
  6. FUROSEMIDE [Concomitant]
  7. NOVOLIN 70/30 [Concomitant]
  8. BACLOFEN [Concomitant]
  9. METOPROLOL TARTRATE [Concomitant]
  10. OMEPRAZOLE [Concomitant]
  11. LISINOPRIL [Concomitant]

REACTIONS (12)
  - ASTHENIA [None]
  - BLOOD CREATINE PHOSPHOKINASE INCREASED [None]
  - BLOOD CREATININE ABNORMAL [None]
  - BLOOD GLUCOSE INCREASED [None]
  - DIARRHOEA [None]
  - DISBACTERIOSIS [None]
  - DYSSTASIA [None]
  - NAUSEA [None]
  - PAIN [None]
  - RHABDOMYOLYSIS [None]
  - TRANSAMINASES INCREASED [None]
  - VOMITING [None]
